FAERS Safety Report 24392299 (Version 2)
Quarter: 2025Q2

REPORT INFORMATION
  Report Type: Report from Study
  Country: US (occurrence: US)
  Receive Date: 20241003
  Receipt Date: 20250429
  Transmission Date: 20250717
  Serious: Yes (Death, Hospitalization, Other)
  Sender: NOVARTIS
  Company Number: US-002147023-NVSC2024US166964

PATIENT
  Age: 72 Year
  Sex: Male

DRUGS (5)
  1. PIQRAY [Suspect]
     Active Substance: ALPELISIB
     Indication: Product used for unknown indication
     Route: 065
  2. TABRECTA [Suspect]
     Active Substance: CAPMATINIB
     Indication: Sarcoma
     Dosage: 400 MG, BID
     Route: 048
     Dates: start: 20231130, end: 20240430
  3. MIDODRINE [Concomitant]
     Active Substance: MIDODRINE
     Indication: Product used for unknown indication
     Route: 065
  4. AMIODARONE [Concomitant]
     Active Substance: AMIODARONE
     Indication: Product used for unknown indication
     Route: 065
  5. MARINOL [Concomitant]
     Active Substance: DRONABINOL
     Indication: Product used for unknown indication
     Route: 065

REACTIONS (5)
  - Sarcoma [Fatal]
  - Malignant neoplasm progression [Fatal]
  - Hypoalbuminaemia [Fatal]
  - Respiratory failure [Unknown]
  - Malnutrition [Unknown]

NARRATIVE: CASE EVENT DATE: 20240206
